FAERS Safety Report 24378035 (Version 1)
Quarter: 2024Q3

REPORT INFORMATION
  Report Type: Spontaneous
  Country: PL (occurrence: PL)
  Receive Date: 20240930
  Receipt Date: 20240930
  Transmission Date: 20241017
  Serious: Yes (Other)
  Sender: JOHNSON AND JOHNSON
  Company Number: PL-JNJFOC-20240968398

PATIENT
  Age: 34 Year
  Sex: Male

DRUGS (1)
  1. LOPERAMIDE HYDROCHLORIDE [Suspect]
     Active Substance: LOPERAMIDE HYDROCHLORIDE
     Indication: Product used for unknown indication
     Route: 048
     Dates: end: 20200821

REACTIONS (4)
  - Altered state of consciousness [Recovered/Resolved]
  - Tachypnoea [Recovered/Resolved]
  - Respiratory disorder [Recovered/Resolved]
  - Toxicity to various agents [Recovered/Resolved]
